FAERS Safety Report 8769820 (Version 3)
Quarter: 2012Q4

REPORT INFORMATION
  Report Type: 
  Country: BE (occurrence: BE)
  Receive Date: 20120905
  Receipt Date: 20121009
  Transmission Date: 20130627
  Serious: Yes (Hospitalization, Disabling)
  Sender: FDA-Public Use
  Company Number: BE-009507513-1208BEL011616

PATIENT
  Age: 54 Year
  Sex: Female

DRUGS (7)
  1. REBETOL [Suspect]
     Indication: HEPATITIS C
     Dosage: 800 mg, BID
     Route: 048
     Dates: start: 20120509, end: 20120629
  2. REBETOL [Suspect]
     Dosage: 600 mg, BID
     Route: 048
     Dates: start: 20120629, end: 20120730
  3. REBETOL [Suspect]
     Dosage: 800 mg, BID
     Route: 048
     Dates: start: 20120730, end: 20120906
  4. REBETOL [Suspect]
     Dosage: 600 mg, bid
     Route: 048
     Dates: start: 20120906
  5. PEGINTRON [Suspect]
     Indication: HEPATITIS C
     Dosage: 80 Microgram, qw
     Dates: start: 20120509
  6. VICTRELIS [Suspect]
     Indication: HEPATITIS C
     Dosage: 2400 mg, tid
     Route: 048
     Dates: start: 20120605
  7. TAMIZAM [Concomitant]
     Dosage: 20 mg, qd
     Dates: start: 20120220

REACTIONS (4)
  - Fatigue [Not Recovered/Not Resolved]
  - Dizziness [Recovered/Resolved]
  - Urticaria [Not Recovered/Not Resolved]
  - Anaemia [Not Recovered/Not Resolved]
